FAERS Safety Report 25282319 (Version 1)
Quarter: 2025Q2

REPORT INFORMATION
  Report Type: Spontaneous
  Country: BR (occurrence: BR)
  Receive Date: 20250508
  Receipt Date: 20250508
  Transmission Date: 20250716
  Serious: Yes (Other)
  Sender: ASTELLAS
  Company Number: BR-PFIZER INC-PV202500052589

PATIENT
  Sex: Male

DRUGS (1)
  1. PADCEV [Suspect]
     Active Substance: ENFORTUMAB VEDOTIN-EJFV
     Indication: Product used for unknown indication
     Route: 065

REACTIONS (4)
  - Femur fracture [Unknown]
  - Neuropathy peripheral [Not Recovered/Not Resolved]
  - Skin reaction [Recovered/Resolved]
  - Fall [Unknown]
